FAERS Safety Report 16838212 (Version 1)
Quarter: 2019Q3

REPORT INFORMATION
  Report Type: Spontaneous
  Country: US (occurrence: US)
  Receive Date: 20190923
  Receipt Date: 20190923
  Transmission Date: 20191005
  Serious: No
  Sender: FDA-Public Use
  Company Number: US-ELI_LILLY_AND_COMPANY-US201909007102

PATIENT
  Sex: Female

DRUGS (2)
  1. GEMCITABINE HYDROCHLORIDE. [Suspect]
     Active Substance: GEMCITABINE HYDROCHLORIDE
     Indication: ABDOMINAL PAIN
     Dosage: UNK, UNKNOWN
     Route: 065
     Dates: start: 20190104
  2. ABRAXANE [Concomitant]
     Active Substance: PACLITAXEL
     Indication: ABDOMINAL PAIN
     Dosage: UNK
     Dates: start: 20190104

REACTIONS (3)
  - Abdominal pain [Unknown]
  - Off label use [Unknown]
  - Rash generalised [Recovered/Resolved]

NARRATIVE: CASE EVENT DATE: 2019
